FAERS Safety Report 19676731 (Version 11)
Quarter: 2022Q1

REPORT INFORMATION
  Report Type: Report from Study
  Country: IL (occurrence: None)
  Receive Date: 20210809
  Receipt Date: 20220315
  Transmission Date: 20220423
  Serious: Yes (Hospitalization)
  Sender: FDA-Public Use
  Company Number: IL-EISAI MEDICAL RESEARCH-EC-2021-097494

PATIENT
  Age: 59 Year
  Sex: Male
  Weight: 62.1 kg

DRUGS (13)
  1. LENVATINIB [Suspect]
     Active Substance: LENVATINIB
     Indication: Pancreatic carcinoma
     Route: 048
     Dates: start: 20210606, end: 20210728
  2. PEMBROLIZUMAB [Suspect]
     Active Substance: PEMBROLIZUMAB
     Indication: Pancreatic carcinoma
     Route: 041
     Dates: start: 20210606, end: 20210627
  3. PEMBROLIZUMAB [Suspect]
     Active Substance: PEMBROLIZUMAB
     Route: 041
     Dates: start: 20210719, end: 20210719
  4. INSULIN NOS [Concomitant]
     Active Substance: INSULIN NOS
     Dates: start: 202012
  5. PREGABALIN [Concomitant]
     Active Substance: PREGABALIN
     Dates: start: 20210201, end: 20210729
  6. PERCOCET [Concomitant]
     Active Substance: ACETAMINOPHEN\OXYCODONE HYDROCHLORIDE
     Dates: start: 20210429, end: 20210729
  7. FENTANYL [Concomitant]
     Active Substance: FENTANYL
     Dates: start: 20210606, end: 20210718
  8. FENTANYL [Concomitant]
     Active Substance: FENTANYL
     Dates: start: 20210607
  9. FENTANYL [Concomitant]
     Active Substance: FENTANYL
     Dates: start: 20210720, end: 20210729
  10. ENOXAPARIN SODIUM [Concomitant]
     Active Substance: ENOXAPARIN SODIUM
     Dates: start: 20210608, end: 20210722
  11. CANNABIS SATIVA FLOWERING TOP [Concomitant]
     Active Substance: CANNABIS SATIVA FLOWERING TOP
     Dates: start: 20210620
  12. MORPHINE SULFATE [Concomitant]
     Active Substance: MORPHINE SULFATE
     Dates: start: 20210719, end: 20210719
  13. OXYCODONE [Concomitant]
     Active Substance: OXYCODONE
     Dates: start: 20210719

REACTIONS (1)
  - Pulmonary embolism [Not Recovered/Not Resolved]

NARRATIVE: CASE EVENT DATE: 20210722
